FAERS Safety Report 7290766-8 (Version None)
Quarter: 2011Q1

REPORT INFORMATION
  Report Type: 
  Country: None (occurrence: None)
  Receive Date: 20110201
  Receipt Date: 20110120
  Transmission Date: 20110831
  Serious: Yes (Death, Hospitalization)
  Sender: FDA-Public Use
  Company Number: 2010AC000067

PATIENT
  Age: 67 Year
  Sex: Male

DRUGS (34)
  1. PHOSLO [Concomitant]
  2. TOBRAMYCIN [Concomitant]
  3. NEXIUM [Concomitant]
  4. AVAPRO [Concomitant]
  5. ASPIRIN [Concomitant]
  6. NEURONTIN [Concomitant]
  7. GENTAMICIN [Concomitant]
  8. DIGOXIN [Suspect]
     Dosage: 0.125 MG; QD; PO
     Route: 048
     Dates: start: 20040410, end: 20070301
  9. KEFLEX [Concomitant]
  10. DOCUSATE [Concomitant]
  11. PEPCID [Concomitant]
  12. VITAMIN B COMPLEX CAP [Concomitant]
  13. TOPROL-XL [Concomitant]
  14. PHENERGAN [Concomitant]
  15. BISACODYL [Concomitant]
  16. VANCOMYCIN [Concomitant]
  17. CIPRO [Concomitant]
  18. TAZOBACTAM [Concomitant]
  19. FOLIC ACID [Concomitant]
  20. PIPERACILLIN [Concomitant]
  21. HEPARIN [Concomitant]
  22. ATIVAN [Concomitant]
  23. COREG [Concomitant]
  24. NEPHROVITE [Concomitant]
  25. VOLTAREN [Concomitant]
  26. TYLOX [Concomitant]
  27. DULCOLAX [Concomitant]
  28. WARFARIN [Concomitant]
  29. ACTOS [Concomitant]
  30. ANCEF [Concomitant]
  31. RAGLAN [Concomitant]
  32. DEMEROL [Concomitant]
  33. NICODERM [Concomitant]
  34. AMBIEN [Concomitant]

REACTIONS (48)
  - INJURY [None]
  - UNEVALUABLE EVENT [None]
  - BRADYCARDIA [None]
  - LOCALISED INFECTION [None]
  - ABDOMINAL PAIN [None]
  - THROMBOSIS IN DEVICE [None]
  - MITRAL VALVE INCOMPETENCE [None]
  - ATRIAL FLUTTER [None]
  - QRS AXIS ABNORMAL [None]
  - OEDEMA [None]
  - ORTHOPNOEA [None]
  - DIARRHOEA [None]
  - ANGINA PECTORIS [None]
  - ECONOMIC PROBLEM [None]
  - CARDIO-RESPIRATORY ARREST [None]
  - VOMITING [None]
  - ISCHAEMIC CARDIOMYOPATHY [None]
  - MYOCARDIAL ISCHAEMIA [None]
  - DYSARTHRIA [None]
  - PLEURAL EFFUSION [None]
  - PERIPHERAL VASCULAR DISORDER [None]
  - APNOEIC ATTACK [None]
  - PROCEDURAL COMPLICATION [None]
  - PULSE ABSENT [None]
  - DIALYSIS [None]
  - SCAR [None]
  - LIMB INJURY [None]
  - CHEST DISCOMFORT [None]
  - NAUSEA [None]
  - FEMORAL ARTERY OCCLUSION [None]
  - TRANSAMINASES INCREASED [None]
  - CARDIOMEGALY [None]
  - FALL [None]
  - LUNG CONSOLIDATION [None]
  - GALLBLADDER DISORDER [None]
  - UNRESPONSIVE TO STIMULI [None]
  - ASTHENIA [None]
  - PAIN IN EXTREMITY [None]
  - PYREXIA [None]
  - CHILLS [None]
  - STAPHYLOCOCCAL SEPSIS [None]
  - BUNDLE BRANCH BLOCK RIGHT [None]
  - MITRAL VALVE DISEASE [None]
  - CARDIAC FAILURE CONGESTIVE [None]
  - SURGERY [None]
  - RENAL FAILURE CHRONIC [None]
  - GASTROOESOPHAGEAL REFLUX DISEASE [None]
  - TRICUSPID VALVE INCOMPETENCE [None]
